FAERS Safety Report 20485331 (Version 1)
Quarter: 2022Q1

REPORT INFORMATION
  Report Type: Spontaneous
  Country: CN (occurrence: None)
  Receive Date: 20220217
  Receipt Date: 20220217
  Transmission Date: 20220423
  Serious: Yes (Other)
  Sender: FDA-Public Use
  Company Number: 2022A069925

PATIENT
  Age: 29844 Day
  Sex: Male

DRUGS (2)
  1. SEROQUEL [Suspect]
     Active Substance: QUETIAPINE FUMARATE
     Indication: Restlessness
     Dosage: THE INITIAL DOSE WAS 0.05G QN. THE DOSAGE WAS INCREASED TO 0.05G TAKEN IN THE MORNING AND 0.1G TA...
     Route: 048
     Dates: start: 20220109, end: 20220204
  2. SEROQUEL [Suspect]
     Active Substance: QUETIAPINE FUMARATE
     Indication: Parkinson^s disease
     Dosage: THE INITIAL DOSE WAS 0.05G QN. THE DOSAGE WAS INCREASED TO 0.05G TAKEN IN THE MORNING AND 0.1G TA...
     Route: 048
     Dates: start: 20220109, end: 20220204

REACTIONS (1)
  - Full blood count decreased [Recovering/Resolving]

NARRATIVE: CASE EVENT DATE: 20220204
